FAERS Safety Report 20821636 (Version 3)
Quarter: 2022Q3

REPORT INFORMATION
  Report Type: Spontaneous
  Country: US (occurrence: US)
  Receive Date: 20220512
  Receipt Date: 20220708
  Transmission Date: 20221026
  Serious: No
  Sender: FDA-Public Use
  Company Number: US-PFIZER INC-202101595057

PATIENT
  Age: 59 Year
  Sex: Female

DRUGS (3)
  1. XELJANZ [Suspect]
     Active Substance: TOFACITINIB CITRATE
     Indication: Psoriatic arthropathy
     Dosage: 5 MG, 1X/DAY
     Route: 048
     Dates: start: 20211107
  2. XELJANZ [Suspect]
     Active Substance: TOFACITINIB CITRATE
     Dosage: 5 MG, 1X/DAY
     Route: 048
     Dates: start: 20211115
  3. OTEZLA [Concomitant]
     Active Substance: APREMILAST
     Dosage: 30 MG, 2X/DAY
     Route: 048

REACTIONS (7)
  - Drug ineffective [Unknown]
  - Off label use [Unknown]
  - Extra dose administered [Unknown]
  - Blood pressure increased [Recovered/Resolved]
  - Dizziness [Unknown]
  - Headache [Unknown]
  - Hypertension [Unknown]
